FAERS Safety Report 11399648 (Version 1)
Quarter: 2015Q3

REPORT INFORMATION
  Report Type: Other
  Country: IT (occurrence: IT)
  Receive Date: 20150820
  Receipt Date: 20150820
  Transmission Date: 20151125
  Serious: Yes (Other)
  Sender: FDA-Public Use
  Company Number: IT-MYLANLABS-2015M1027054

PATIENT

DRUGS (1)
  1. CLARITHROMYCIN. [Suspect]
     Active Substance: CLARITHROMYCIN
     Indication: TONSILLITIS
     Dosage: UNK
     Dates: start: 201507

REACTIONS (2)
  - Dyspnoea [Recovering/Resolving]
  - Asthmatic crisis [Unknown]

NARRATIVE: CASE EVENT DATE: 20150728
